FAERS Safety Report 4520072-3 (Version None)
Quarter: 2004Q4

REPORT INFORMATION
  Report Type: 
  Country: None (occurrence: None)
  Receive Date: 20041207
  Receipt Date: 20041028
  Transmission Date: 20050328
  Serious: Yes (Hospitalization, Other)
  Sender: FDA-Public Use
  Company Number: PHBS2004KR14563

PATIENT
  Age: 42 Year
  Sex: Male

DRUGS (1)
  1. CARBAMAZEPINE [Suspect]
     Indication: NEURALGIA
     Dosage: 600 MG/DAY
     Route: 048

REACTIONS (23)
  - BLOOD IMMUNOGLOBULIN E INCREASED [None]
  - BRONCHOALVEOLAR LAVAGE ABNORMAL [None]
  - C-REACTIVE PROTEIN INCREASED [None]
  - DRUG HYPERSENSITIVITY [None]
  - DYSPNOEA [None]
  - EOSINOPHILIA [None]
  - EOSINOPHILIC PNEUMONIA [None]
  - HAEMATOCRIT DECREASED [None]
  - HAEMOGLOBIN DECREASED [None]
  - HYDROTHORAX [None]
  - HYPERHIDROSIS [None]
  - INTERSTITIAL LUNG DISEASE [None]
  - LYMPHADENOPATHY [None]
  - LYMPHADENOPATHY MEDIASTINAL [None]
  - MULTIPLE SCLEROSIS [None]
  - PRURITUS [None]
  - PULMONARY FIBROSIS [None]
  - PYREXIA [None]
  - RALES [None]
  - RASH [None]
  - RED BLOOD CELL SEDIMENTATION RATE INCREASED [None]
  - RESPIRATORY RATE INCREASED [None]
  - SWELLING FACE [None]
